FAERS Safety Report 17655638 (Version 1)
Quarter: 2020Q2

REPORT INFORMATION
  Report Type: Report from Study
  Country: CA (occurrence: CA)
  Receive Date: 20200410
  Receipt Date: 20200410
  Transmission Date: 20200713
  Serious: Yes (Hospitalization)
  Sender: FDA-Public Use
  Company Number: CA-TAKEDA-2020TUS017793

PATIENT
  Age: 86 Year
  Sex: Male

DRUGS (2)
  1. VEDOLIZUMAB [Suspect]
     Active Substance: VEDOLIZUMAB
     Indication: COLITIS ULCERATIVE
     Dosage: 300 MILLIGRAM
     Route: 042
     Dates: start: 20160426
  2. ASACOL [Concomitant]
     Active Substance: MESALAMINE
     Dosage: UNK

REACTIONS (8)
  - Dehydration [Unknown]
  - Abdominal pain upper [Unknown]
  - Nausea [Unknown]
  - Head injury [Unknown]
  - Anxiety [Unknown]
  - Fall [Unknown]
  - Vomiting [Unknown]
  - Asthenia [Unknown]
